FAERS Safety Report 18714215 (Version 6)
Quarter: 2021Q3

REPORT INFORMATION
  Report Type: Report from Study
  Country: MX (occurrence: MX)
  Receive Date: 20210107
  Receipt Date: 20210927
  Transmission Date: 20211014
  Serious: Yes (Hospitalization, Other)
  Sender: FDA-Public Use
  Company Number: MX-INCYTE CORPORATION-2020IN013102

PATIENT

DRUGS (3)
  1. JAKAVI [Suspect]
     Active Substance: RUXOLITINIB
     Indication: MYELOFIBROSIS
     Dosage: 40 MG, QD (DAILY)
     Route: 048
     Dates: start: 20200306
  2. JAKAVI [Suspect]
     Active Substance: RUXOLITINIB
     Dosage: 40 MG, QD (DAILY)
     Route: 048
     Dates: start: 202012, end: 202101
  3. JAKAVI [Suspect]
     Active Substance: RUXOLITINIB
     Dosage: 40 MG, QD (ONCE DAILY)
     Route: 048

REACTIONS (7)
  - Inappropriate schedule of product administration [Unknown]
  - Kidney infection [Recovering/Resolving]
  - Haematochezia [Not Recovered/Not Resolved]
  - Syncope [Not Recovered/Not Resolved]
  - Anal haemorrhage [Not Recovered/Not Resolved]
  - Anaemia [Not Recovered/Not Resolved]
  - Haemorrhoids [Unknown]

NARRATIVE: CASE EVENT DATE: 2020
